FAERS Safety Report 24078822 (Version 1)
Quarter: 2024Q3

REPORT INFORMATION
  Report Type: Spontaneous
  Country: IN (occurrence: IN)
  Receive Date: 20240711
  Receipt Date: 20240711
  Transmission Date: 20241016
  Serious: Yes (Other)
  Sender: MYLAN
  Company Number: IN-MYLANLABS-2024M1064470

PATIENT
  Age: 4 Decade
  Sex: Male

DRUGS (4)
  1. IMATINIB [Suspect]
     Active Substance: IMATINIB
     Indication: Gastrointestinal stromal tumour
     Dosage: 400 MILLIGRAM, QD, FOR 6 MONTHS
     Route: 065
  2. IMATINIB [Suspect]
     Active Substance: IMATINIB
     Indication: Metastatic neoplasm
     Dosage: 800 MILLIGRAM, QD, FOR ANOTHER 6 MONTHS
     Route: 065
  3. SUNITINIB [Suspect]
     Active Substance: SUNITINIB
     Indication: Gastrointestinal stromal tumour
     Dosage: 50 MILLIGRAM, QD (50MG/DAY FOR FOUR WEEKS AT EVERY 6-WEEKLY INTERVALS)
     Route: 065
  4. SUNITINIB [Suspect]
     Active Substance: SUNITINIB
     Indication: Metastatic neoplasm
     Dosage: 50 MILLIGRAM, QD (REINTRODUCED AFTER 8?WEEKS OF DISCONTINUATION WITH SAME DOSE)
     Route: 065

REACTIONS (3)
  - Drug ineffective [Unknown]
  - Disease progression [Unknown]
  - Pleural effusion [Recovered/Resolved]
